FAERS Safety Report 8029382-9 (Version None)
Quarter: 2012Q1

REPORT INFORMATION
  Report Type: 
  Country: None (occurrence: None)
  Receive Date: 20120106
  Receipt Date: 20120103
  Transmission Date: 20120608
  Serious: Yes (Hospitalization)
  Sender: FDA-Public Use
  Company Number: FR-ROCHE-1027639

PATIENT
  Sex: Female
  Weight: 68.9 kg

DRUGS (9)
  1. REPAGLINIDE [Concomitant]
     Route: 048
     Dates: start: 20100331
  2. TRAMADOL HCL [Concomitant]
     Route: 048
     Dates: start: 20080331
  3. ACETAMINOPHEN [Concomitant]
     Dosage: 1 G X 4D
     Route: 065
     Dates: start: 20100221
  4. MYCOPHENOLATE MOFETIL (CELLCEPT) [Suspect]
     Indication: RENAL TRANSPLANT
     Dosage: 750
     Route: 048
     Dates: start: 20070701
  5. ATORVASTATIN CALCIUM [Concomitant]
     Route: 048
     Dates: start: 20100706
  6. SPASFON [Concomitant]
     Route: 048
     Dates: start: 20100331
  7. CLARITIN [Concomitant]
     Route: 048
     Dates: start: 20070701
  8. LUTENYL [Concomitant]
     Route: 048
     Dates: start: 20070701
  9. CANDESARTAN CILEXETIL [Concomitant]
     Route: 048
     Dates: start: 20080728

REACTIONS (1)
  - PULMONARY EMBOLISM [None]
